FAERS Safety Report 5375543-7 (Version None)
Quarter: 2007Q2

REPORT INFORMATION
  Report Type: 
  Country: None (occurrence: None)
  Receive Date: 20070627
  Receipt Date: 20070508
  Transmission Date: 20071010
  Serious: Yes (Other)
  Sender: FDA-Public Use
  Company Number: FSC_00112_2007

PATIENT
  Age: 35 Year
  Sex: Male

DRUGS (1)
  1. VERAPAMIL [Suspect]
     Indication: CLUSTER HEADACHE
     Dosage: (240 MG QD), (360 MG QD)

REACTIONS (2)
  - BRADYCARDIA [None]
  - HYPOTENSION [None]
